FAERS Safety Report 20119737 (Version 6)
Quarter: 2025Q2

REPORT INFORMATION
  Report Type: Report from Study
  Country: CA (occurrence: CA)
  Receive Date: 20211126
  Receipt Date: 20250513
  Transmission Date: 20250717
  Serious: Yes (Death, Hospitalization, Other)
  Sender: VERITY PHARMACEUTICALS INC.
  Company Number: CA-VER-202100303

PATIENT
  Age: 69 Year

DRUGS (18)
  1. ABIRATERONE [Concomitant]
     Active Substance: ABIRATERONE
     Indication: Product used for unknown indication
     Route: 065
  2. PREDNISONE [Concomitant]
     Active Substance: PREDNISONE
     Indication: Product used for unknown indication
     Dosage: TWICE DAILY
     Route: 065
  3. TRELSTAR [Suspect]
     Active Substance: TRIPTORELIN PAMOATE
     Dosage: POWDER FOR PROLONGED-RELEASE SUSPENSION FOR INJECT
     Route: 030
  4. TRELSTAR [Suspect]
     Active Substance: TRIPTORELIN PAMOATE
     Dosage: POWDER FOR PROLONGED-RELEASE SUSPENSION FOR INJECT
     Route: 030
     Dates: start: 20210820, end: 20210820
  5. TRELSTAR [Suspect]
     Active Substance: TRIPTORELIN PAMOATE
     Dosage: POWDER FOR PROLONGED-RELEASE SUSPENSION FOR INJECT
     Route: 030
     Dates: start: 20211111, end: 20211111
  6. TRELSTAR [Suspect]
     Active Substance: TRIPTORELIN PAMOATE
     Dosage: POWDER FOR PROLONGED-RELEASE SUSPENSION FOR INJECT
     Route: 030
     Dates: start: 20220211, end: 20220211
  7. TRELSTAR [Suspect]
     Active Substance: TRIPTORELIN PAMOATE
     Dosage: POWDER FOR PROLONGED-RELEASE SUSPENSION FOR INJECT
     Route: 030
     Dates: start: 202205, end: 202205
  8. TRELSTAR [Suspect]
     Active Substance: TRIPTORELIN PAMOATE
     Dosage: POWDER FOR PROLONGED-RELEASE SUSPENSION FOR INJECT
     Route: 030
     Dates: start: 20220815, end: 20220815
  9. TRELSTAR [Suspect]
     Active Substance: TRIPTORELIN PAMOATE
     Dosage: POWDER FOR PROLONGED-RELEASE SUSPENSION FOR INJECT
     Route: 030
     Dates: start: 20221111, end: 20221111
  10. TRELSTAR [Suspect]
     Active Substance: TRIPTORELIN PAMOATE
     Dosage: POWDER FOR PROLONGED-RELEASE SUSPENSION FOR INJECT
     Route: 030
     Dates: start: 20230215, end: 20230215
  11. TRELSTAR [Suspect]
     Active Substance: TRIPTORELIN PAMOATE
     Dosage: POWDER FOR PROLONGED-RELEASE SUSPENSION FOR INJECT
     Route: 030
     Dates: start: 20230516, end: 20230516
  12. TRELSTAR [Suspect]
     Active Substance: TRIPTORELIN PAMOATE
     Dosage: POWDER FOR PROLONGED-RELEASE SUSPENSION FOR INJECT
     Route: 030
     Dates: start: 20230809, end: 20230809
  13. TRELSTAR [Suspect]
     Active Substance: TRIPTORELIN PAMOATE
     Dosage: POWDER FOR PROLONGED-RELEASE SUSPENSION FOR INJECT
     Route: 030
     Dates: start: 20231109, end: 20231109
  14. TRELSTAR [Suspect]
     Active Substance: TRIPTORELIN PAMOATE
     Dosage: POWDER FOR PROLONGED-RELEASE SUSPENSION FOR INJECT
     Route: 030
     Dates: start: 20240205, end: 20240205
  15. TRELSTAR [Suspect]
     Active Substance: TRIPTORELIN PAMOATE
     Dosage: POWDER FOR PROLONGED-RELEASE SUSPENSION FOR INJECT
     Route: 030
     Dates: start: 20240508, end: 20240508
  16. TRELSTAR [Suspect]
     Active Substance: TRIPTORELIN PAMOATE
     Dosage: POWDER FOR PROLONGED-RELEASE SUSPENSION FOR INJECT
     Route: 030
     Dates: start: 20240801, end: 20240801
  17. TRELSTAR [Suspect]
     Active Substance: TRIPTORELIN PAMOATE
     Dosage: POWDER FOR PROLONGED-RELEASE SUSPENSION FOR INJECT
     Route: 030
     Dates: start: 20241024, end: 20241024
  18. TRELSTAR [Suspect]
     Active Substance: TRIPTORELIN PAMOATE
     Dosage: POWDER FOR PROLONGED-RELEASE SUSPENSION FOR INJECT
     Route: 030
     Dates: start: 20250123, end: 20250123

REACTIONS (6)
  - Injection site haemorrhage [Unknown]
  - Gout [Recovering/Resolving]
  - Death [Fatal]
  - Weight increased [Unknown]
  - Inappropriate schedule of product administration [Recovered/Resolved]
  - Delirium [Recovering/Resolving]

NARRATIVE: CASE EVENT DATE: 20211031
